FAERS Safety Report 5243615-3 (Version None)
Quarter: 2007Q1

REPORT INFORMATION
  Report Type: 
  Country: None (occurrence: None)
  Receive Date: 20070220
  Receipt Date: 20070220
  Transmission Date: 20070707
  Serious: No
  Sender: FDA-Public Use
  Company Number: None

PATIENT
  Sex: Male
  Weight: 107.9561 kg

DRUGS (1)
  1. GADOLLINIUM [Suspect]
     Indication: RENAL MASS
     Dosage: IV   (ONCE ONLY)
     Route: 042
     Dates: start: 20060829

REACTIONS (6)
  - ARTHRALGIA [None]
  - DEPENDENCE ON ENABLING MACHINE OR DEVICE [None]
  - NEPHRITIS INTERSTITIAL [None]
  - NEPHROGENIC FIBROSING DERMOPATHY [None]
  - RENAL CELL CARCINOMA STAGE UNSPECIFIED [None]
  - RENAL FAILURE ACUTE [None]
